FAERS Safety Report 5207993-3 (Version None)
Quarter: 2007Q1

REPORT INFORMATION
  Report Type: 
  Country: None (occurrence: None)
  Receive Date: 20070115
  Receipt Date: 20061228
  Transmission Date: 20070707
  Serious: Yes (Other)
  Sender: FDA-Public Use
  Company Number: US-RB-004632-06

PATIENT
  Sex: Female
  Weight: 45.9 kg

DRUGS (5)
  1. SUBOXONE [Suspect]
     Route: 060
     Dates: start: 20060615
  2. PROTONIX [Concomitant]
     Dates: start: 20061001
  3. PROTONIX [Concomitant]
     Dates: start: 20061001
  4. SINEQUAN [Concomitant]
     Indication: DEPRESSION
  5. CYMBALTA [Concomitant]
     Indication: DEPRESSION
     Dates: start: 20060901

REACTIONS (4)
  - ACNE CYSTIC [None]
  - FIBROCYSTIC BREAST DISEASE [None]
  - MENSTRUATION IRREGULAR [None]
  - OILY SKIN [None]
